FAERS Safety Report 6642926-4 (Version None)
Quarter: 2010Q1

REPORT INFORMATION
  Report Type: 
  Country: None (occurrence: None)
  Receive Date: 20100319
  Receipt Date: 20100308
  Transmission Date: 20100710
  Serious: Yes (Other)
  Sender: FDA-Public Use
  Company Number: ID-JNJFOC-20100302410

PATIENT
  Age: 60 Year
  Sex: Female

DRUGS (1)
  1. DORIPENEM [Suspect]
     Indication: PNEUMONIA
     Route: 041

REACTIONS (1)
  - PARTIAL SEIZURES [None]
